FAERS Safety Report 10618677 (Version 2)
Quarter: 2014Q4

REPORT INFORMATION
  Report Type: Spontaneous
  Country: JP (occurrence: JP)
  Receive Date: 20141202
  Receipt Date: 20141216
  Transmission Date: 20150529
  Serious: Yes (Other)
  Sender: FDA-Public Use
  Company Number: PHHY2014JP155578

PATIENT
  Age: 65 Year
  Sex: Male

DRUGS (3)
  1. GLIBENCLAMIDE [Concomitant]
     Active Substance: GLYBURIDE
     Indication: TYPE 2 DIABETES MELLITUS
     Dosage: 1.25 MG, BID
     Route: 048
  2. DOCETAXEL. [Concomitant]
     Active Substance: DOCETAXEL
     Indication: PROSTATE CANCER
     Dosage: 120 MG, QD
     Route: 065
  3. ZOLEDRONATE [Suspect]
     Active Substance: ZOLEDRONIC ACID
     Indication: METASTASES TO BONE
     Dosage: 4 MG, TID
     Route: 065
     Dates: start: 200805

REACTIONS (5)
  - Purulent discharge [Recovered/Resolved]
  - Primary sequestrum [Recovered/Resolved]
  - Pain [Recovered/Resolved]
  - Exposed bone in jaw [Recovered/Resolved]
  - Osteonecrosis of jaw [Recovering/Resolving]

NARRATIVE: CASE EVENT DATE: 200808
